FAERS Safety Report 6438028-2 (Version None)
Quarter: 2009Q4

REPORT INFORMATION
  Report Type: 
  Country: None (occurrence: None)
  Receive Date: 20091112
  Receipt Date: 20091104
  Transmission Date: 20100525
  Serious: Yes (Hospitalization)
  Sender: FDA-Public Use
  Company Number: US-MERCK-0911USA01328

PATIENT
  Age: 62 Year
  Sex: Male

DRUGS (3)
  1. DECADRON [Suspect]
     Route: 048
  2. REVLIMID [Suspect]
     Indication: MULTIPLE MYELOMA
     Route: 048
     Dates: start: 20090406, end: 20090707
  3. COUMADIN [Concomitant]
     Indication: ANTICOAGULANT THERAPY
     Route: 065

REACTIONS (5)
  - CONFUSIONAL STATE [None]
  - DELUSION [None]
  - GAIT DISTURBANCE [None]
  - LETHARGY [None]
  - PARANOIA [None]
